FAERS Safety Report 21765908 (Version 1)
Quarter: 2022Q4

REPORT INFORMATION
  Report Type: Report from Study
  Country: US (occurrence: US)
  Receive Date: 20221222
  Receipt Date: 20221222
  Transmission Date: 20230112
  Serious: No
  Sender: FDA-Public Use
  Company Number: US-ABBVIE-4206619

PATIENT
  Age: 25 Year
  Sex: Male

DRUGS (1)
  1. HUMIRA [Suspect]
     Active Substance: ADALIMUMAB
     Indication: Psoriatic arthropathy
     Dosage: DRUG START DATE 02 NOV 2022
     Route: 058

REACTIONS (9)
  - Ingrown hair [Not Recovered/Not Resolved]
  - Rash [Not Recovered/Not Resolved]
  - Musculoskeletal discomfort [Unknown]
  - Tremor [Unknown]
  - Pharyngeal disorder [Unknown]
  - Chills [Unknown]
  - Feeling abnormal [Unknown]
  - Visual impairment [Recovered/Resolved]
  - Anxiety [Unknown]

NARRATIVE: CASE EVENT DATE: 20221101
